FAERS Safety Report 6222221-8 (Version None)
Quarter: 2009Q2

REPORT INFORMATION
  Report Type: 
  Country: None (occurrence: None)
  Receive Date: 20090611
  Receipt Date: 20090605
  Transmission Date: 20091009
  Serious: Yes (Hospitalization)
  Sender: FDA-Public Use
  Company Number: PHHY2009JP22141

PATIENT
  Age: 80 Year
  Sex: Female

DRUGS (10)
  1. PARLODEL [Suspect]
     Indication: PARKINSON'S DISEASE
     Dosage: 7.5 MG, UNK
     Route: 048
  2. GASMOTIN [Concomitant]
     Dosage: 15 MG, UNK
     Route: 048
  3. MAGLAX [Concomitant]
     Dosage: 1500 MG, UNK
     Route: 048
  4. CARBIDOPA AND LEVODOPA [Concomitant]
     Dosage: 400 MG, UNK
     Route: 048
  5. RIVOTRIL [Concomitant]
     Dosage: 1 MG, UNK
     Route: 048
  6. MYSLEE [Concomitant]
     Dosage: 5 MG, UNK
     Route: 048
  7. ONEALFA [Concomitant]
     Dosage: 1 U G
     Route: 048
  8. REQUIP [Concomitant]
     Dosage: 1 MG, UNK
     Route: 048
  9. CABASER [Concomitant]
     Dosage: 1 MG, UNK
     Route: 048
  10. ANTIBIOTICS [Concomitant]

REACTIONS (3)
  - FOREIGN BODY TRAUMA [None]
  - PNEUMONIA [None]
  - VOMITING [None]
